FAERS Safety Report 6239015-X (Version None)
Quarter: 2009Q2

REPORT INFORMATION
  Report Type: 
  Country: None (occurrence: None)
  Receive Date: 20090622
  Receipt Date: 20090616
  Transmission Date: 20091009
  Serious: Yes (Death, Hospitalization)
  Sender: FDA-Public Use
  Company Number: B0579142A

PATIENT
  Sex: Female

DRUGS (4)
  1. AUGMENTIN '125' [Suspect]
     Indication: CREPITATIONS
     Dosage: 2G PER DAY
     Route: 048
     Dates: start: 20090525, end: 20090529
  2. KARDEGIC [Concomitant]
     Route: 065
     Dates: start: 20090501
  3. CALCIPARINE [Concomitant]
     Route: 065
     Dates: start: 20090501
  4. CARDENSIEL [Concomitant]
     Route: 065
     Dates: start: 20090501

REACTIONS (2)
  - MIXED LIVER INJURY [None]
  - URTICARIA [None]
